FAERS Safety Report 5020522-2 (Version None)
Quarter: 2006Q2

REPORT INFORMATION
  Report Type: 
  Country: None (occurrence: None)
  Receive Date: 20060606
  Receipt Date: 20060606
  Transmission Date: 20061013
  Serious: Yes (Life-Threatening, Hospitalization, Other)
  Sender: FDA-Public Use
  Company Number: None

PATIENT
  Age: 39 Year
  Sex: Female
  Weight: 76.2043 kg

DRUGS (1)
  1. CYMBALTA [Suspect]
     Indication: FIBROMYALGIA
     Dosage: 30MG TWO DAILY PO
     Route: 048
     Dates: start: 20051101, end: 20060601

REACTIONS (8)
  - ANGER [None]
  - CRYING [None]
  - DEPRESSION [None]
  - FEELING ABNORMAL [None]
  - FEELINGS OF WORTHLESSNESS [None]
  - IMPAIRED SELF-CARE [None]
  - MENTAL DISORDER [None]
  - SUICIDAL IDEATION [None]
